FAERS Safety Report 10575086 (Version 2)
Quarter: 2015Q2

REPORT INFORMATION
  Report Type: Spontaneous
  Country: US (occurrence: US)
  Receive Date: 20141111
  Receipt Date: 20150421
  Transmission Date: 20150821
  Serious: No
  Sender: FDA-Public Use
  Company Number: US-LEO PHARMA-230528

PATIENT
  Sex: Male

DRUGS (2)
  1. PICATO [Suspect]
     Active Substance: INGENOL MEBUTATE
     Indication: PRODUCT USED FOR UNKNOWN INDICATION
     Dates: start: 20150308, end: 20150310
  2. PICATO [Suspect]
     Active Substance: INGENOL MEBUTATE
     Indication: ACTINIC KERATOSIS
     Route: 061
     Dates: start: 20141027, end: 20141029

REACTIONS (4)
  - Application site erythema [Not Recovered/Not Resolved]
  - Application site scab [Not Recovered/Not Resolved]
  - Application site pain [Not Recovered/Not Resolved]
  - Inappropriate schedule of drug administration [Unknown]

NARRATIVE: CASE EVENT DATE: 20141027
